FAERS Safety Report 6362783-3 (Version None)
Quarter: 2009Q3

REPORT INFORMATION
  Report Type: 
  Country: None (occurrence: None)
  Receive Date: 20090919
  Receipt Date: 20090605
  Transmission Date: 20100115
  Serious: No
  Sender: FDA-Public Use
  Company Number: US-ABBOTT-09P-163-0578664-00

PATIENT
  Sex: Female
  Weight: 57.658 kg

DRUGS (25)
  1. HUMIRA [Suspect]
     Indication: PUSTULAR PSORIASIS
     Route: 058
     Dates: start: 20090216, end: 20090501
  2. HUMIRA [Suspect]
     Indication: PSORIATIC ARTHROPATHY
  3. SIMVASTATIN [Concomitant]
     Indication: BLOOD CHOLESTEROL INCREASED
  4. LISINOPRIL [Concomitant]
     Indication: HYPERTENSION
  5. AMLODIPINE [Concomitant]
     Indication: HYPERTENSION
  6. CALCIUM [Concomitant]
     Indication: INTERVERTEBRAL DISC DEGENERATION
  7. ASPIRIN [Concomitant]
     Indication: CARDIOVASCULAR EVENT PROPHYLAXIS
  8. PREDNISONE [Concomitant]
     Indication: PUSTULAR PSORIASIS
  9. LAMOTRIGINE [Concomitant]
     Indication: AFFECTIVE DISORDER
  10. CLONAZEPAM [Concomitant]
     Indication: ANXIETY
  11. CLONAZEPAM [Concomitant]
     Indication: INSOMNIA
  12. GLUCOSAMINE + CHONDROITIN [Concomitant]
     Indication: ARTHROPATHY
  13. OMEPRAZOLE [Concomitant]
     Indication: PROPHYLAXIS AGAINST GASTROINTESTINAL ULCER
  14. GABAPENTIN [Concomitant]
     Indication: PAIN
  15. OXYCODONE [Concomitant]
     Indication: PAIN
     Dosage: 5/350 MG TABS
  16. FOLIC ACID [Concomitant]
     Indication: SKIN EXFOLIATION
  17. TRIAMCINOLONE ACETONIDE [Concomitant]
     Indication: PSORIASIS
  18. LOVAZA [Concomitant]
     Indication: DRUG USE FOR UNKNOWN INDICATION
  19. FLAXSEED OIL [Concomitant]
     Indication: DRUG USE FOR UNKNOWN INDICATION
  20. VITAMIN B COMPLEX CAP [Concomitant]
     Indication: DRUG USE FOR UNKNOWN INDICATION
  21. ANUCORT-HC [Concomitant]
     Indication: PAIN
     Route: 054
  22. ANUCORT-HC [Concomitant]
     Indication: CONSTIPATION
  23. KAO-TIN DOCUSATE SODIUM [Concomitant]
     Indication: LAXATIVE SUPPORTIVE CARE
  24. TRAZODONE [Concomitant]
     Indication: INSOMNIA
  25. CLARITIN ATADINE NON ALLERGY MEDICATION [Concomitant]
     Indication: HYPERSENSITIVITY

REACTIONS (4)
  - BLISTER [None]
  - PRURITUS [None]
  - SKIN HAEMORRHAGE [None]
  - SKIN PAPILLOMA [None]
